FAERS Safety Report 7227389-2 (Version None)
Quarter: 2011Q1

REPORT INFORMATION
  Report Type: 
  Country: None (occurrence: None)
  Receive Date: 20110105
  Receipt Date: 20101220
  Transmission Date: 20110831
  Serious: Yes (Death, Other)
  Sender: FDA-Public Use
  Company Number: 2010005125

PATIENT
  Age: 43 Year
  Sex: Female
  Weight: 65 kg

DRUGS (9)
  1. ALDACTONE [Concomitant]
  2. ZOMETA [Concomitant]
  3. ALFACALCIDOL (ALFACALCIDOL) [Concomitant]
  4. GASTER (FAMOTIDINE) [Concomitant]
  5. ERLOTINIB (ERLOTINIB) (OINTMENT) (ERLOTINIB) [Suspect]
     Indication: LUNG ADENOCARCINOMA
     Dosage: 150 MG, QD, ORAL
     Route: 048
     Dates: start: 20090604, end: 20090815
  6. LASIX [Concomitant]
  7. RINDERON (BETAMETHASONE) [Concomitant]
  8. ALENDRONIC ACID (ALENDRONATE ACID) [Concomitant]
  9. ISOSORBIDE (ISOSORBIDE) [Concomitant]

REACTIONS (6)
  - PULMONARY EMBOLISM [None]
  - DEEP VEIN THROMBOSIS [None]
  - PURPURA [None]
  - ACNE [None]
  - RESPIRATORY FAILURE [None]
  - DIARRHOEA [None]
